FAERS Safety Report 4506755-X (Version None)
Quarter: 2004Q4

REPORT INFORMATION
  Report Type: 
  Country: None (occurrence: None)
  Receive Date: 20041122
  Receipt Date: 20041116
  Transmission Date: 20050328
  Serious: Yes (Life-Threatening)
  Sender: FDA-Public Use
  Company Number: FR-MERCK-0411FRA00068

PATIENT
  Age: 82 Year
  Sex: Female

DRUGS (8)
  1. HYZAAR [Suspect]
     Indication: HYPERTENSION
     Route: 048
     Dates: end: 20040914
  2. CANDESARTAN CILEXETIL AND HYDROCHLOROTHIAZIDE [Suspect]
     Indication: HYPERTENSION
     Route: 048
     Dates: end: 20040914
  3. INDAPAMIDE AND PERINDOPRIL ERBUMINE [Suspect]
     Indication: HYPERTENSION
     Route: 048
     Dates: end: 20040914
  4. FUROSEMIDE AND SPIRONOLACTONE [Suspect]
     Indication: HYPERTENSION
     Route: 048
     Dates: end: 20040914
  5. TENOXICAM [Suspect]
     Indication: BACK PAIN
     Route: 030
     Dates: start: 20040901, end: 20040913
  6. AMIODARONE [Concomitant]
     Route: 048
  7. LEVOTHYROXINE SODIUM [Concomitant]
     Indication: HYPOTHYROIDISM
     Route: 048
  8. NITROGLYCERIN [Concomitant]
     Indication: ANGINA PECTORIS
     Route: 061

REACTIONS (6)
  - BACK PAIN [None]
  - BRADYCARDIA [None]
  - DRUG INTERACTION [None]
  - HAEMODIALYSIS [None]
  - HYPERKALAEMIA [None]
  - RENAL FAILURE ACUTE [None]
